FAERS Safety Report 4908449-5 (Version None)
Quarter: 2006Q1

REPORT INFORMATION
  Report Type: 
  Country: None (occurrence: None)
  Receive Date: 20060210
  Receipt Date: 20050705
  Transmission Date: 20060701
  Serious: No
  Sender: FDA-Public Use
  Company Number: US-GLAXOSMITHKLINE-A0564942A

PATIENT
  Age: 59 Year
  Sex: Male

DRUGS (7)
  1. PAXIL CR [Suspect]
     Dosage: 37.5MG PER DAY
     Route: 048
  2. VALIUM [Concomitant]
  3. ATENOLOL [Concomitant]
  4. COZAAR [Concomitant]
  5. LIPITOR [Concomitant]
  6. MOTRIN [Concomitant]
  7. VICODIN [Concomitant]

REACTIONS (2)
  - NAUSEA [None]
  - SEXUAL DYSFUNCTION [None]
